FAERS Safety Report 6569006-0 (Version None)
Quarter: 2010Q1

REPORT INFORMATION
  Report Type: 
  Country: None (occurrence: None)
  Receive Date: 20100203
  Receipt Date: 20100122
  Transmission Date: 20100710
  Serious: Yes (Other)
  Sender: FDA-Public Use
  Company Number: ES-JNJFOC-20100110257

PATIENT
  Sex: Female

DRUGS (5)
  1. PREZISTA [Suspect]
     Indication: HIV INFECTION
     Dosage: 2-0-2
     Route: 048
  2. PREZISTA [Suspect]
     Dosage: 2-0-2
     Route: 048
  3. COMBIVIR [Concomitant]
     Indication: HIV INFECTION
     Dosage: 1-0-1
     Route: 048
  4. NORVIR [Concomitant]
     Indication: HIV INFECTION
     Dosage: 1-0-1
     Route: 048
  5. ARANESP [Concomitant]
     Indication: ANAEMIA

REACTIONS (2)
  - DRUG EXPOSURE DURING PREGNANCY [None]
  - GESTATIONAL DIABETES [None]
